FAERS Safety Report 5786646-7 (Version None)
Quarter: 2008Q2

REPORT INFORMATION
  Report Type: 
  Country: None (occurrence: None)
  Receive Date: 20080624
  Receipt Date: 20080609
  Transmission Date: 20081010
  Serious: Yes (Other)
  Sender: FDA-Public Use
  Company Number: US-PFIZER INC-2008052326

PATIENT
  Sex: Male
  Weight: 61.2 kg

DRUGS (2)
  1. VIAGRA [Suspect]
  2. ALL OTHER THERAPEUTIC PRODUCTS [Concomitant]

REACTIONS (6)
  - CYANOPSIA [None]
  - DRUG INEFFECTIVE [None]
  - FLUSHING [None]
  - INTENTIONAL OVERDOSE [None]
  - NASAL CONGESTION [None]
  - SURGERY [None]
